FAERS Safety Report 14161484 (Version 3)
Quarter: 2018Q1

REPORT INFORMATION
  Report Type: Spontaneous
  Country: DE (occurrence: DE)
  Receive Date: 20171106
  Receipt Date: 20180208
  Transmission Date: 20180508
  Serious: Yes (Hospitalization, Other)
  Sender: FDA-Public Use
  Company Number: DE-HORIZON-PRE-0342-2017

PATIENT
  Age: 73 Year
  Sex: Female

DRUGS (4)
  1. TAFLOTAN [Concomitant]
     Active Substance: TAFLUPROST
  2. ACETYLSALICYLIC ACID [Concomitant]
     Active Substance: ASPIRIN
  3. LODOTRA [Suspect]
     Active Substance: PREDNISONE
     Indication: RHEUMATIC DISORDER
     Dosage: 5 MG DAILY (EVENING)
     Route: 048
     Dates: start: 20170425
  4. NIFURANTIN [Suspect]
     Active Substance: NITROFURANTOIN
     Indication: CYSTITIS NONINFECTIVE
     Dosage: 100 MG THREE TIMES DAILY FOR 5 DAYS

REACTIONS (2)
  - Gastrointestinal wall thickening [Recovered/Resolved]
  - Cystitis noninfective [Unknown]

NARRATIVE: CASE EVENT DATE: 201706
